FAERS Safety Report 7757150-1 (Version None)
Quarter: 2011Q3

REPORT INFORMATION
  Report Type: 
  Country: None (occurrence: None)
  Receive Date: 20110916
  Receipt Date: 20110901
  Transmission Date: 20111222
  Serious: Yes (Hospitalization)
  Sender: FDA-Public Use
  Company Number: US-WATSON-2011-14734

PATIENT
  Age: 53 Year
  Sex: Male

DRUGS (2)
  1. HYDROCODONE BITARTRATE/ACETAMINOPHEN [Suspect]
     Indication: SUICIDE ATTEMPT
     Dosage: UNK
  2. CARISOPRODOL [Suspect]
     Indication: SUICIDE ATTEMPT
     Dosage: UNK

REACTIONS (4)
  - OVERDOSE [None]
  - MENTAL STATUS CHANGES [None]
  - STUPOR [None]
  - MIOSIS [None]
